FAERS Safety Report 13752563 (Version 1)
Quarter: 2017Q3

REPORT INFORMATION
  Report Type: Spontaneous
  Country: US (occurrence: US)
  Receive Date: 20170713
  Receipt Date: 20170713
  Transmission Date: 20171127
  Serious: Yes (Disabling, Other)
  Sender: FDA-Public Use
  Company Number: US-REGENERON PHARMACEUTICALS, INC.-2017-15146

PATIENT

DRUGS (4)
  1. EYLEA [Suspect]
     Active Substance: AFLIBERCEPT
     Dosage: 2 MG, RIGHT EYE, EVERY 6 WEEKS
     Route: 031
     Dates: start: 20170112, end: 20170112
  2. EYLEA [Suspect]
     Active Substance: AFLIBERCEPT
     Indication: AGE-RELATED MACULAR DEGENERATION
     Dosage: 2 MG, RIGHT EYE, EVERY 6 WEEKS, FIRST DOSE
     Route: 031
     Dates: start: 20160505, end: 20170323
  3. EYLEA [Suspect]
     Active Substance: AFLIBERCEPT
     Dosage: 2 MG, RIGHT EYE, EVERY 6 WEEKS
     Route: 031
     Dates: start: 20170323, end: 20170323
  4. EYLEA [Suspect]
     Active Substance: AFLIBERCEPT
     Dosage: 2 MG, RIGHT EYE, EVERY 6 WEEKS, LAST DOSE
     Route: 031
     Dates: start: 20161118, end: 20161118

REACTIONS (4)
  - Iritis [Recovered/Resolved]
  - Endophthalmitis [Recovered/Resolved]
  - Blindness unilateral [Unknown]
  - Eye inflammation [Recovered/Resolved]

NARRATIVE: CASE EVENT DATE: 20170112
